FAERS Safety Report 9355134 (Version 1)
Quarter: 2013Q2

REPORT INFORMATION
  Report Type: Spontaneous
  Country: JP (occurrence: JP)
  Receive Date: 20130619
  Receipt Date: 20130619
  Transmission Date: 20140414
  Serious: Yes (Other)
  Sender: FDA-Public Use
  Company Number: JP-ROXANE LABORATORIES, INC.-2013-RO-00960RO

PATIENT
  Age: 53 Year
  Sex: Male

DRUGS (5)
  1. FUROSEMIDE [Suspect]
     Indication: CARDIAC FAILURE
     Dates: start: 201008
  2. TRICHLORMETHIAZIDE [Suspect]
     Indication: CARDIAC FAILURE
     Dosage: 4 MG
     Dates: start: 201008
  3. CARVEDILOL [Suspect]
     Indication: CARDIAC FAILURE
     Dosage: 2.5 MG
     Dates: start: 201008
  4. ENALAPRIL [Suspect]
     Indication: CARDIAC FAILURE
     Dosage: 2.5 MG
     Dates: start: 201008
  5. SPIRONOLACTONE [Suspect]
     Indication: CARDIAC FAILURE
     Dosage: 25 MG
     Dates: start: 201008

REACTIONS (2)
  - Hyponatraemia [Recovered/Resolved]
  - Renal failure chronic [Recovered/Resolved]
